FAERS Safety Report 18766853 (Version 5)
Quarter: 2021Q2

REPORT INFORMATION
  Report Type: Spontaneous
  Country: US (occurrence: US)
  Receive Date: 20210121
  Receipt Date: 20210616
  Transmission Date: 20210717
  Serious: Yes (Other)
  Sender: FDA-Public Use
  Company Number: US-GLAXOSMITHKLINE-US2021AMR008467

PATIENT
  Sex: Female

DRUGS (6)
  1. LISINOPRIL. [Concomitant]
     Active Substance: LISINOPRIL
     Indication: PRODUCT USED FOR UNKNOWN INDICATION
     Dosage: UNK
  2. ZEJULA [Suspect]
     Active Substance: NIRAPARIB
     Dosage: 100 MG, QD
  3. ZEJULA [Suspect]
     Active Substance: NIRAPARIB
     Dosage: UNK (200 MG ALTERNATING WITH 100 MG EVERY OTHER DAY).
     Dates: start: 202104
  4. ZEJULA [Suspect]
     Active Substance: NIRAPARIB
     Indication: OVARIAN CANCER
     Dosage: 100 MG, QD
     Dates: start: 20200814
  5. ZEJULA [Suspect]
     Active Substance: NIRAPARIB
     Dosage: 100 MG, QD
  6. TEMAZEPAM. [Concomitant]
     Active Substance: TEMAZEPAM
     Indication: PRODUCT USED FOR UNKNOWN INDICATION
     Dosage: UNK

REACTIONS (10)
  - Blood pressure increased [Not Recovered/Not Resolved]
  - Condition aggravated [Unknown]
  - Hypoaesthesia eye [Unknown]
  - Hypoaesthesia [Unknown]
  - Constipation [Unknown]
  - Inappropriate schedule of product administration [Unknown]
  - Bell^s palsy [Unknown]
  - Tinnitus [Unknown]
  - Insomnia [Unknown]
  - Asthenia [Unknown]
